FAERS Safety Report 4999920-9 (Version None)
Quarter: 2006Q2

REPORT INFORMATION
  Report Type: 
  Country: None (occurrence: None)
  Receive Date: 20060509
  Receipt Date: 20060509
  Transmission Date: 20061013
  Serious: Yes (Hospitalization)
  Sender: FDA-Public Use
  Company Number: None

PATIENT
  Sex: Male
  Weight: 154.5 kg

DRUGS (2)
  1. KEPPRA [Suspect]
     Indication: CONVULSION
     Dosage: 500MG    ONCE   PO
     Route: 048
     Dates: start: 20060506, end: 20060507
  2. TOPAMAX [Concomitant]

REACTIONS (1)
  - PSYCHOTIC DISORDER [None]
